FAERS Safety Report 7800412-X (Version None)
Quarter: 2011Q4

REPORT INFORMATION
  Report Type: 
  Country: None (occurrence: None)
  Receive Date: 20111006
  Receipt Date: 20110922
  Transmission Date: 20120403
  Serious: Yes (Other)
  Sender: FDA-Public Use
  Company Number: AU-JNJFOC-20110910478

PATIENT
  Sex: Female

DRUGS (2)
  1. CODRAL COUGH, COLD AND FLU DAY/NIGHT (NIGHT) [Suspect]
     Indication: PRODUCT USED FOR UNKNOWN INDICATION
     Dosage: TWO NIGHT TABLETS BEFORE SLEEP
     Route: 048
     Dates: start: 20110901, end: 20110901
  2. CODRAL COUGH, COLD AND FLU DAY/NIGHT (DAY) [Suspect]
     Indication: PRODUCT USED FOR UNKNOWN INDICATION
     Route: 048
     Dates: start: 20110901, end: 20110901

REACTIONS (4)
  - ABDOMINAL PAIN UPPER [None]
  - BODY TEMPERATURE FLUCTUATION [None]
  - HALLUCINATION [None]
  - VOMITING [None]
